FAERS Safety Report 5511615-1 (Version None)
Quarter: 2007Q4

REPORT INFORMATION
  Report Type: 
  Country: None (occurrence: None)
  Receive Date: 20071109
  Receipt Date: 20071106
  Transmission Date: 20080405
  Serious: Yes (Hospitalization)
  Sender: FDA-Public Use
  Company Number: FR-WYE-G00566707

PATIENT
  Sex: Female

DRUGS (16)
  1. PIPERACILLIN AND TAZOBACTAM [Suspect]
     Indication: SKIN BACTERIAL INFECTION
     Route: 042
     Dates: start: 20070506, end: 20070507
  2. PIPERACILLIN AND TAZOBACTAM [Suspect]
     Indication: PSEUDOMONAS INFECTION
  3. PIPERACILLIN AND TAZOBACTAM [Suspect]
     Indication: STAPHYLOCOCCAL SKIN INFECTION
  4. PIPERACILLIN AND TAZOBACTAM [Suspect]
     Indication: BETA HAEMOLYTIC STREPTOCOCCAL INFECTION
  5. VANCOMYCIN [Concomitant]
     Route: 042
     Dates: start: 20070506, end: 20070511
  6. OXYGEN [Concomitant]
     Dosage: UNKNOWN
     Route: 055
     Dates: start: 20070505
  7. NITROUS OXIDE [Concomitant]
     Dosage: UNKNOWN
     Route: 055
     Dates: start: 20070505
  8. CORTANCYL [Concomitant]
     Dosage: 22.5 MG TOTAL DAILY
  9. ASPEGIC 1000 [Concomitant]
     Dosage: 250 MG TOTAL DAILY
  10. PANTOPRAZOLE SODIUM [Concomitant]
     Dosage: 20 MG TOTAL DAILY
     Route: 048
  11. LOVENOX [Concomitant]
     Dosage: 0.40 ML TOTAL DAILY
  12. CALCIUM CARBONATE [Concomitant]
     Dosage: 1 DOSE TOTAL DAILY
  13. COLECALCIFEROL [Concomitant]
     Dosage: 1 DOSE TOTAL DAILY
  14. TARDYFERON [Concomitant]
     Dosage: 80 MG TOTAL DAILY
  15. PYOSTACINE [Concomitant]
     Indication: INFECTION PROPHYLAXIS
     Route: 048
     Dates: start: 20060101, end: 20070506
  16. TRAMADOL HCL [Concomitant]
     Dosage: 200 MG TOTAL DAILY

REACTIONS (2)
  - ANGIOEDEMA [None]
  - DRUG HYPERSENSITIVITY [None]
